FAERS Safety Report 10551013 (Version 1)
Quarter: 2014Q4

REPORT INFORMATION
  Report Type: Spontaneous
  Country: US (occurrence: None)
  Receive Date: 20141020
  Receipt Date: 20141020
  Transmission Date: 20150529
  Serious: No
  Sender: FDA-Public Use
  Company Number: AEGR000710

PATIENT
  Age: 31 Year
  Sex: Female
  Weight: 91.2 kg

DRUGS (8)
  1. JUXTAPID [Suspect]
     Active Substance: LOMITAPIDE MESYLATE
     Indication: TYPE IIA HYPERLIPIDAEMIA
     Route: 048
     Dates: start: 20140811
  2. PLAVIX ( CLOPIDOGREL BISULFATE) TABLET [Concomitant]
  3. ASPIRIN ( ACETYLSALICYLIC ACID) TABLET [Concomitant]
  4. METOPROLOL ( METOPROLOL TARTRATE) [Concomitant]
  5. VITAMIN C ( ASCORBIC ACID) [Concomitant]
  6. ATORVASTATIN ( ATORVASTATIN CALCIUM) TABLET [Concomitant]
  7. VITAMIN E ( TOCOPHERYL ACETATE) [Concomitant]
  8. OMEGA 3 6 9 ( OMEGA 9 FATTY ACIDS, OMEGA-3 FATTY ACIDS, OMEGA-6 FATTY ACIDS) [Concomitant]

REACTIONS (2)
  - Weight decreased [None]
  - Diarrhoea [None]

NARRATIVE: CASE EVENT DATE: 201408
